FAERS Safety Report 10011336 (Version 4)
Quarter: 2014Q3

REPORT INFORMATION
  Report Type: Report from Study
  Country: SG (occurrence: None)
  Receive Date: 20140311
  Receipt Date: 20140812
  Transmission Date: 20150326
  Serious: Yes (Death)
  Sender: FDA-Public Use
  Company Number: 2014SG003051

PATIENT
  Age: 66 Year
  Sex: Female
  Weight: 39 kg

DRUGS (1)
  1. PONATINIB [Suspect]
     Active Substance: PONATINIB
     Indication: CHRONIC MYELOID LEUKAEMIA
     Route: 048
     Dates: start: 20110131, end: 20140123

REACTIONS (25)
  - Pulse absent [None]
  - Haemorrhoidal haemorrhage [None]
  - Pleural effusion [None]
  - Somnolence [None]
  - Haematuria [None]
  - Diverticulum [None]
  - Acute coronary syndrome [None]
  - Faecaloma [None]
  - Fibrosis [None]
  - Urinary retention [None]
  - Unresponsive to stimuli [None]
  - Hepatic congestion [None]
  - Renal failure chronic [None]
  - Myocarditis [None]
  - Colitis ulcerative [None]
  - Haemoglobin decreased [None]
  - Pulmonary oedema [None]
  - Arteriosclerosis [None]
  - Spleen congestion [None]
  - Kidney small [None]
  - Pericarditis [None]
  - Sudden death [None]
  - Rectal haemorrhage [None]
  - Gastrointestinal haemorrhage [None]
  - Mitral valve disease [None]

NARRATIVE: CASE EVENT DATE: 20140221
